FAERS Safety Report 13860471 (Version 2)
Quarter: 2018Q2

REPORT INFORMATION
  Report Type: Spontaneous
  Country: CA (occurrence: CA)
  Receive Date: 20170811
  Receipt Date: 20180611
  Transmission Date: 20180711
  Serious: Yes (Hospitalization, Other)
  Sender: FDA-Public Use
  Company Number: CA-SA-2017SA143133

PATIENT
  Age: 89 Year
  Sex: Male

DRUGS (5)
  1. CELECOXIB. [Concomitant]
     Active Substance: CELECOXIB
     Dosage: 200 MG, BID
  2. BCG FOR IMMUNOTHERAPY [Suspect]
     Active Substance: BACILLUS CALMETTE-GUERIN ANTIGEN, UNSPECIFIED SUBSTRAIN
     Indication: BLADDER CANCER
     Dosage: UNK UNK,UNK
     Route: 043
  3. BCG FOR IMMUNOTHERAPY [Suspect]
     Active Substance: BACILLUS CALMETTE-GUERIN ANTIGEN, UNSPECIFIED SUBSTRAIN
     Dosage: UNK UNK,UNK
     Route: 043
  4. VERAPAMIL [Concomitant]
     Active Substance: VERAPAMIL HYDROCHLORIDE
     Dosage: UNK
  5. PANTOPRAZOLE 40 [Concomitant]
     Active Substance: PANTOPRAZOLE SODIUM
     Dosage: UNK MG

REACTIONS (19)
  - Paraesthesia [Recovering/Resolving]
  - Aphasia [Recovering/Resolving]
  - Confusional state [Recovering/Resolving]
  - Transient ischaemic attack [Unknown]
  - Muscular weakness [Unknown]
  - Disseminated Bacillus Calmette-Guerin infection [Recovering/Resolving]
  - Dysarthria [Recovering/Resolving]
  - Vasculitis cerebral [Recovering/Resolving]
  - Somnolence [Recovering/Resolving]
  - Septic shock [Unknown]
  - Delirium [Recovering/Resolving]
  - Fatigue [Recovering/Resolving]
  - Hemiparesis [Recovering/Resolving]
  - Endophthalmitis [Recovering/Resolving]
  - Disturbance in attention [Recovering/Resolving]
  - Memory impairment [Recovering/Resolving]
  - Clumsiness [Recovering/Resolving]
  - Facial paralysis [Recovering/Resolving]
  - Gait disturbance [Recovering/Resolving]
